FAERS Safety Report 5808061-X (Version None)
Quarter: 2008Q3

REPORT INFORMATION
  Report Type: 
  Country: None (occurrence: None)
  Receive Date: 20080711
  Receipt Date: 20080701
  Transmission Date: 20090109
  Serious: Yes (Other)
  Sender: FDA-Public Use
  Company Number: US-WYE-H04859008

PATIENT
  Age: 56 Year
  Sex: Female
  Weight: 62.65 kg

DRUGS (9)
  1. EFFEXOR XR [Suspect]
     Indication: ANXIETY
     Dosage: UNKNOWN
     Route: 048
     Dates: start: 20050101, end: 20060101
  2. EFFEXOR XR [Suspect]
     Dosage: TAPERING DOWN
     Route: 048
     Dates: start: 20060101, end: 20060101
  3. EFFEXOR XR [Suspect]
     Route: 048
     Dates: start: 20060101, end: 20060101
  4. EFFEXOR XR [Suspect]
     Route: 048
     Dates: start: 20060101, end: 20060101
  5. EFFEXOR XR [Suspect]
     Dosage: RESUMED THERAPY AT UNKNOWN DOSE
     Route: 048
     Dates: start: 20060101, end: 20080101
  6. EFFEXOR XR [Suspect]
     Dosage: ALTERNATING DAILY DOSES OF 37.5 MG AND 75 MG
     Route: 048
     Dates: start: 20080101
  7. EFFEXOR XR [Suspect]
     Route: 048
     Dates: start: 20060101, end: 20060101
  8. XANAX [Concomitant]
     Dosage: 25 MG PRN
     Route: 048
  9. FORTEO [Concomitant]
     Indication: OSTEOPENIA
     Dosage: UNKNOWN
     Dates: start: 20080315

REACTIONS (5)
  - DIZZINESS [None]
  - DRUG WITHDRAWAL SYNDROME [None]
  - PRESYNCOPE [None]
  - TREMOR [None]
  - UNEVALUABLE EVENT [None]
